FAERS Safety Report 7656042-6 (Version None)
Quarter: 2011Q3

REPORT INFORMATION
  Report Type: 
  Country: None (occurrence: None)
  Receive Date: 20110804
  Receipt Date: 20110721
  Transmission Date: 20111222
  Serious: Yes (Other)
  Sender: FDA-Public Use
  Company Number: US-ELI_LILLY_AND_COMPANY-US201107006945

PATIENT
  Age: 45 Year
  Sex: Male

DRUGS (1)
  1. AXIRON [Suspect]
     Dosage: UNK, UNKNOWN
     Route: 065
     Dates: start: 20110504, end: 20110720

REACTIONS (1)
  - THROMBOPHLEBITIS SUPERFICIAL [None]
